FAERS Safety Report 5367535-9 (Version None)
Quarter: 2007Q2

REPORT INFORMATION
  Report Type: 
  Country: None (occurrence: None)
  Receive Date: 20070620
  Receipt Date: 20070620
  Transmission Date: 20071010
  Serious: Yes (Other)
  Sender: FDA-Public Use
  Company Number: None

PATIENT
  Age: 56 Year
  Sex: Female
  Weight: 61.2356 kg

DRUGS (1)
  1. NEXIUM [Suspect]
     Indication: HYPERCHLORHYDRIA
     Dates: start: 20070219, end: 20070605

REACTIONS (13)
  - ARTHRALGIA [None]
  - BLOOD PRESSURE INCREASED [None]
  - BONE PAIN [None]
  - EAR PAIN [None]
  - EYE PAIN [None]
  - FATIGUE [None]
  - HEADACHE [None]
  - HOT FLUSH [None]
  - INSOMNIA [None]
  - MYALGIA [None]
  - PAIN IN EXTREMITY [None]
  - PHARYNGOLARYNGEAL PAIN [None]
  - THYROID DISORDER [None]
